FAERS Safety Report 24791821 (Version 2)
Quarter: 2025Q1

REPORT INFORMATION
  Report Type: Spontaneous
  Country: JP (occurrence: JP)
  Receive Date: 20241231
  Receipt Date: 20250109
  Transmission Date: 20250409
  Serious: Yes (Hospitalization)
  Sender: TEVA
  Company Number: JP-TEVA-VS-3279407

PATIENT
  Age: 69 Year
  Sex: Male

DRUGS (4)
  1. LEVOFLOXACIN [Suspect]
     Active Substance: LEVOFLOXACIN
     Indication: Liver abscess
     Route: 048
  2. DIATRIZOATE MEGLUMINE\DIATRIZOATE SODIUM [Suspect]
     Active Substance: DIATRIZOATE MEGLUMINE\DIATRIZOATE SODIUM
     Indication: Scan with contrast
     Route: 042
  3. PIPERACILLIN SODIUM\TAZOBACTAM SODIUM [Concomitant]
     Active Substance: PIPERACILLIN SODIUM\TAZOBACTAM SODIUM
     Indication: Liver abscess
     Route: 042
  4. CEFOPERAZONE\SULBACTAM [Suspect]
     Active Substance: CEFOPERAZONE\SULBACTAM
     Indication: Liver abscess
     Route: 065

REACTIONS (2)
  - Granuloma [Recovering/Resolving]
  - Tubulointerstitial nephritis [Recovering/Resolving]
